FAERS Safety Report 4699356-4 (Version None)
Quarter: 2005Q2

REPORT INFORMATION
  Report Type: 
  Country: None (occurrence: None)
  Receive Date: 20050624
  Receipt Date: 20050329
  Transmission Date: 20051028
  Serious: Yes (Hospitalization)
  Sender: FDA-Public Use
  Company Number: US-SANOFI-SYNTHELABO-D01200502379

PATIENT
  Sex: Male
  Weight: 68.9 kg

DRUGS (10)
  1. CLOPIDOGREL BISULFATE [Suspect]
     Indication: ATRIAL FIBRILLATION
     Route: 048
     Dates: start: 20031126
  2. ASPIRIN [Concomitant]
     Indication: ATRIAL FIBRILLATION
     Dosage: 81 MG
     Route: 048
     Dates: start: 20031126
  3. DIGOXIN [Concomitant]
  4. LIPITOR [Concomitant]
  5. LORAZEPAM [Concomitant]
  6. PROTONIX [Concomitant]
  7. POTASSIUM CHLORIDE [Concomitant]
  8. LASIX [Concomitant]
  9. VECURONIUM BROMIDE [Concomitant]
  10. PENTOXIFYLLINE [Concomitant]

REACTIONS (12)
  - CHRONIC OBSTRUCTIVE AIRWAYS DISEASE EXACERBATED [None]
  - CYSTITIS RADIATION [None]
  - HAEMATOCRIT DECREASED [None]
  - HAEMATURIA [None]
  - HAEMOGLOBIN DECREASED [None]
  - HAEMORRHAGE [None]
  - HYDRONEPHROSIS [None]
  - HYDROURETER [None]
  - RENAL IMPAIRMENT [None]
  - RESPIRATORY ARREST [None]
  - RESPIRATORY FAILURE [None]
  - URINARY RETENTION [None]
